FAERS Safety Report 8571818 (Version 4)
Quarter: 2012Q4

REPORT INFORMATION
  Report Type: Report from Study
  Country: FR (occurrence: FR)
  Receive Date: 20120521
  Receipt Date: 20120920
  Transmission Date: 20130627
  Serious: Yes (Other)
  Sender: FDA-Public Use
  Company Number: PHHO2012FR007477

PATIENT
  Age: 14 Year
  Sex: Male
  Weight: 42 kg

DRUGS (9)
  1. ZOLEDRONATE [Suspect]
     Dosage: UNK
     Dates: start: 20110918
  2. METHOTREXATE [Suspect]
     Dosage: 17.15 g, UNK
     Route: 042
     Dates: start: 20110524, end: 20110723
  3. IFOSFAMIDE [Suspect]
     Dosage: 4.4 g, UNK
     Route: 042
     Dates: start: 20110616, end: 20110723
  4. DOXORUBICIN [Suspect]
     Dosage: 104 mg, UNK
     Route: 042
     Dates: start: 20110725
  5. CISPLATIN [Suspect]
     Dosage: 167 mg, UNK
     Route: 042
     Dates: start: 20110725
  6. VP-16 [Suspect]
     Dosage: 110 mg, UNK
     Route: 042
     Dates: start: 20110616, end: 20110723
  7. TAZOCILLINE [Concomitant]
     Dosage: UNK
     Route: 042
     Dates: start: 20110919
  8. ZOPHREN [Concomitant]
     Indication: NAUSEA
     Dosage: UNK
     Route: 042
     Dates: start: 20110919
  9. SPASFON [Concomitant]
     Indication: ABDOMINAL PAIN
     Dosage: UNK
     Route: 042
     Dates: start: 20110919

REACTIONS (4)
  - Hypocalcaemia [Recovered/Resolved]
  - Neoplasm progression [Not Recovered/Not Resolved]
  - Mucosal inflammation [Recovered/Resolved]
  - Neoplasm malignant [Not Recovered/Not Resolved]
